FAERS Safety Report 4661363-5 (Version None)
Quarter: 2005Q2

REPORT INFORMATION
  Report Type: 
  Country: None (occurrence: None)
  Receive Date: 20050512
  Receipt Date: 20041119
  Transmission Date: 20051028
  Serious: Yes (Congenital Anomaly)
  Sender: FDA-Public Use
  Company Number: 05-05-0772

PATIENT
  Sex: Female

DRUGS (12)
  1. RANITIDINE [Suspect]
     Dosage: TRANSPLACENTAL
     Route: 064
     Dates: start: 20030627
  2. ......... [Concomitant]
  3. BECLOMETHASONE DIPROPIONATE [Suspect]
  4. ........... [Concomitant]
  5. INFLUENZA VIRUS VACCINE [Suspect]
     Dates: start: 20031016
  6. AMOXICILLIN [Suspect]
     Dosage: TRANSPLACENTAL
     Route: 064
     Dates: start: 20030811, end: 20030818
  7. ....... [Concomitant]
  8. IRON [Suspect]
     Dosage: TRANSPLACENTAL
     Route: 064
     Dates: start: 20030924, end: 20031201
  9. ..................... [Concomitant]
  10. PERMETHRIN [Suspect]
     Dosage: TRANSPLACENTAL
     Route: 064
     Dates: start: 20030916
  11. SALBUTAMOL [Suspect]
  12. .................. [Concomitant]

REACTIONS (2)
  - DRUG EXPOSURE DURING PREGNANCY [None]
  - TALIPES [None]
